FAERS Safety Report 5802090-8 (Version None)
Quarter: 2008Q3

REPORT INFORMATION
  Report Type: 
  Country: None (occurrence: None)
  Receive Date: 20080707
  Receipt Date: 20080625
  Transmission Date: 20090109
  Serious: Yes (Other)
  Sender: FDA-Public Use
  Company Number: PHEH2008US05858

PATIENT
  Sex: Female

DRUGS (2)
  1. EXELON [Suspect]
     Dosage: 9.5 MG, QD
     Route: 062
  2. EXELON [Suspect]
     Dosage: 4.6 MG, QD
     Route: 062

REACTIONS (5)
  - COMMUNICATION DISORDER [None]
  - CONFUSIONAL STATE [None]
  - EATING DISORDER [None]
  - GAIT DISTURBANCE [None]
  - SOMNOLENCE [None]
